FAERS Safety Report 5803829-8 (Version None)
Quarter: 2008Q3

REPORT INFORMATION
  Report Type: 
  Country: None (occurrence: None)
  Receive Date: 20080708
  Receipt Date: 20080610
  Transmission Date: 20090109
  Serious: No
  Sender: FDA-Public Use
  Company Number: US-BOEHRINGER INGELHEIM GMBH, GERMANY-2008-BP-09085BP

PATIENT
  Age: 67 Year
  Sex: Female

DRUGS (10)
  1. SPIRIVA [Suspect]
     Indication: CHRONIC OBSTRUCTIVE PULMONARY DISEASE
     Route: 055
     Dates: start: 20080527, end: 20080606
  2. PREDNISONE TAB [Concomitant]
  3. FORADIL [Concomitant]
  4. QVAR 40 [Concomitant]
  5. MAXAIR MDI [Concomitant]
     Route: 055
  6. NEXIUM [Concomitant]
  7. TRENTAL [Concomitant]
  8. COZAAR [Concomitant]
  9. ASPIRIN [Concomitant]
  10. FOSAMAX [Concomitant]

REACTIONS (3)
  - GENERALISED OEDEMA [None]
  - OEDEMA PERIPHERAL [None]
  - VISION BLURRED [None]
